FAERS Safety Report 12953089 (Version 3)
Quarter: 2017Q2

REPORT INFORMATION
  Report Type: Spontaneous
  Country: US (occurrence: US)
  Receive Date: 20161117
  Receipt Date: 20170525
  Transmission Date: 20170830
  Serious: No
  Sender: FDA-Public Use
  Company Number: US-ASTRAZENECA-2016SF19534

PATIENT
  Age: 483 Month
  Sex: Female
  Weight: 90.7 kg

DRUGS (14)
  1. BYDUREON [Suspect]
     Active Substance: EXENATIDE
     Indication: TYPE 2 DIABETES MELLITUS
     Route: 058
     Dates: start: 201606, end: 201606
  2. BYDUREON [Suspect]
     Active Substance: EXENATIDE
     Indication: TYPE 2 DIABETES MELLITUS
     Route: 058
  3. BYDUREON [Suspect]
     Active Substance: EXENATIDE
     Indication: TYPE 2 DIABETES MELLITUS
     Route: 058
     Dates: start: 2016
  4. BYDUREON [Suspect]
     Active Substance: EXENATIDE
     Indication: WEIGHT INCREASED
     Route: 058
  5. BYDUREON [Suspect]
     Active Substance: EXENATIDE
     Indication: WEIGHT INCREASED
     Route: 058
     Dates: start: 2016
  6. BYDUREON [Suspect]
     Active Substance: EXENATIDE
     Indication: TYPE 2 DIABETES MELLITUS
     Route: 058
     Dates: start: 201609
  7. TRULICITY [Concomitant]
     Active Substance: DULAGLUTIDE
     Dosage: HAD ONE DOSE
     Dates: end: 201606
  8. BYDUREON [Suspect]
     Active Substance: EXENATIDE
     Indication: WEIGHT INCREASED
     Route: 058
     Dates: start: 201608
  9. BYDUREON [Suspect]
     Active Substance: EXENATIDE
     Indication: WEIGHT INCREASED
     Route: 058
     Dates: start: 201612
  10. VICTOZA [Concomitant]
     Active Substance: LIRAGLUTIDE
     Dates: start: 201607, end: 201608
  11. BYDUREON [Suspect]
     Active Substance: EXENATIDE
     Indication: WEIGHT INCREASED
     Route: 058
     Dates: start: 201606, end: 201606
  12. BYDUREON [Suspect]
     Active Substance: EXENATIDE
     Indication: TYPE 2 DIABETES MELLITUS
     Route: 058
     Dates: start: 201608
  13. BYDUREON [Suspect]
     Active Substance: EXENATIDE
     Indication: WEIGHT INCREASED
     Route: 058
     Dates: start: 201609
  14. BYDUREON [Suspect]
     Active Substance: EXENATIDE
     Indication: TYPE 2 DIABETES MELLITUS
     Route: 058
     Dates: start: 201612

REACTIONS (8)
  - Blood glucose increased [Unknown]
  - Anxiety [Unknown]
  - Insurance issue [Unknown]
  - Feeling abnormal [Unknown]
  - Malaise [Unknown]
  - Intentional product misuse [Not Recovered/Not Resolved]
  - Fungal infection [Not Recovered/Not Resolved]
  - Depression [Not Recovered/Not Resolved]

NARRATIVE: CASE EVENT DATE: 201606
